FAERS Safety Report 7558394-4 (Version None)
Quarter: 2011Q2

REPORT INFORMATION
  Report Type: 
  Country: None (occurrence: None)
  Receive Date: 20110620
  Receipt Date: 20110607
  Transmission Date: 20111010
  Serious: Yes (Other)
  Sender: FDA-Public Use
  Company Number: PHEH2007US09955

PATIENT
  Sex: Female
  Weight: 92.971 kg

DRUGS (7)
  1. FEMARA [Concomitant]
  2. ATIVAN [Concomitant]
  3. CARBOPLATIN [Concomitant]
  4. BENADRYL [Concomitant]
  5. ZOMETA [Suspect]
     Indication: BREAST CANCER
     Dosage: 4MG
  6. DECADRON [Concomitant]
  7. ZOFRAN [Concomitant]

REACTIONS (43)
  - PAIN [None]
  - MEASLES [None]
  - DYSPONESIS [None]
  - PYREXIA [None]
  - UPPER-AIRWAY COUGH SYNDROME [None]
  - HYPOPHAGIA [None]
  - ANHEDONIA [None]
  - PERIODONTITIS [None]
  - LOOSE TOOTH [None]
  - RHINORRHOEA [None]
  - BONE DISORDER [None]
  - INFECTION [None]
  - DISCOMFORT [None]
  - LIFE EXPECTANCY SHORTENED [None]
  - OEDEMA PERIPHERAL [None]
  - LYMPHADENOPATHY [None]
  - AUTONOMIC NERVOUS SYSTEM IMBALANCE [None]
  - SPINAL OSTEOARTHRITIS [None]
  - DEFORMITY [None]
  - ANXIETY [None]
  - ARTHRALGIA [None]
  - DYSKINESIA [None]
  - OROPHARYNGEAL PAIN [None]
  - DYSPHONIA [None]
  - OSTEONECROSIS OF JAW [None]
  - EMOTIONAL DISTRESS [None]
  - ANAEMIA [None]
  - APPENDICITIS [None]
  - BONE LESION [None]
  - FATIGUE [None]
  - CONTUSION [None]
  - BONE EROSION [None]
  - ORAL PAIN [None]
  - METASTASES TO CENTRAL NERVOUS SYSTEM [None]
  - BACK PAIN [None]
  - ORAL DISORDER [None]
  - DYSPHAGIA [None]
  - BLOOD CHOLESTEROL INCREASED [None]
  - PRIMARY SEQUESTRUM [None]
  - EPISTAXIS [None]
  - SINUS HEADACHE [None]
  - VISION BLURRED [None]
  - EXPOSED BONE IN JAW [None]
